FAERS Safety Report 10589519 (Version 1)
Quarter: 2014Q4

REPORT INFORMATION
  Report Type: Spontaneous
  Country: DE (occurrence: None)
  Receive Date: 20141114
  Receipt Date: 20141114
  Transmission Date: 20150529
  Serious: Yes (Other)
  Sender: FDA-Public Use
  Company Number: IMP_08145_2014

PATIENT
  Age: 51 Year
  Sex: Male

DRUGS (1)
  1. CABERGOLINE (CABERGOLINE) [Suspect]
     Active Substance: CABERGOLINE
     Indication: PARKINSON^S DISEASE

REACTIONS (3)
  - Mitral valve incompetence [None]
  - Cardiac valve sclerosis [None]
  - Aortic valve incompetence [None]

NARRATIVE: CASE EVENT DATE: 200606
